FAERS Safety Report 9826302 (Version 1)
Quarter: 2014Q1

REPORT INFORMATION
  Report Type: Spontaneous
  Country: US (occurrence: US)
  Receive Date: 20140117
  Receipt Date: 20140117
  Transmission Date: 20141002
  Serious: No
  Sender: FDA-Public Use
  Company Number: US-BIOGENIDEC-2014BI000993

PATIENT
  Sex: Female
  Weight: 62 kg

DRUGS (16)
  1. TECFIDERA [Suspect]
     Indication: PRODUCT USED FOR UNKNOWN INDICATION
     Route: 048
  2. SINGULAIR [Concomitant]
  3. ZOCOR [Concomitant]
  4. SYNTHROID [Concomitant]
  5. FLOVENT [Concomitant]
  6. PROZAC [Concomitant]
  7. SPIRIVA [Concomitant]
  8. LOSARTAN POT [Concomitant]
  9. FISH OIL [Concomitant]
  10. VIT D3/VIT C 1000-500 [Concomitant]
  11. MULTI 50+ FOR HER [Concomitant]
  12. SUPER B [Concomitant]
  13. OMEGA 3 [Concomitant]
  14. ALPHA LIPOIC [Concomitant]
  15. NUVIGIL [Concomitant]
  16. PROBIOTIC [Concomitant]

REACTIONS (1)
  - Flatulence [Unknown]
